FAERS Safety Report 16843346 (Version 1)
Quarter: 2019Q3

REPORT INFORMATION
  Report Type: Spontaneous
  Country: US (occurrence: US)
  Receive Date: 20190924
  Receipt Date: 20190924
  Transmission Date: 20191005
  Serious: Yes (Hospitalization, Other)
  Sender: FDA-Public Use
  Company Number: US-GILEAD-2019-0429431

PATIENT
  Sex: Female

DRUGS (1)
  1. VIREAD [Suspect]
     Active Substance: TENOFOVIR DISOPROXIL FUMARATE
     Indication: HIV INFECTION
     Dosage: UNK
     Route: 048
     Dates: start: 2001, end: 2017

REACTIONS (19)
  - Fatigue [Not Recovered/Not Resolved]
  - Hip fracture [Unknown]
  - Quality of life decreased [Unknown]
  - Economic problem [Unknown]
  - Anhedonia [Unknown]
  - Pain [Unknown]
  - Injury [Unknown]
  - Chronic kidney disease [Unknown]
  - Hip arthroplasty [Unknown]
  - Wheelchair user [Not Recovered/Not Resolved]
  - Anxiety [Unknown]
  - Loss of personal independence in daily activities [Unknown]
  - Decreased activity [Unknown]
  - Social problem [Not Recovered/Not Resolved]
  - Osteoporosis [Unknown]
  - Wrist fracture [Unknown]
  - Bone density decreased [Unknown]
  - Mobility decreased [Not Recovered/Not Resolved]
  - Emotional distress [Unknown]
